FAERS Safety Report 8633735 (Version 5)
Quarter: 2013Q1

REPORT INFORMATION
  Report Type: Report from Study
  Country: BR (occurrence: BR)
  Receive Date: 20120625
  Receipt Date: 20130226
  Transmission Date: 20140127
  Serious: Yes (Hospitalization, Other)
  Sender: FDA-Public Use
  Company Number: BR-ROCHE-759859

PATIENT
  Age: 16 None
  Sex: Female
  Weight: 50 kg

DRUGS (14)
  1. MABTHERA [Suspect]
     Indication: SYSTEMIC LUPUS ERYTHEMATOSUS
     Route: 065
     Dates: start: 20090311, end: 20100901
  2. MABTHERA [Suspect]
     Indication: RHEUMATOID ARTHRITIS
     Route: 042
  3. MABTHERA [Suspect]
     Dosage: ADDITIONAL INDICATION: RHUEMATOID ARTHRITIS
     Route: 042
  4. MABTHERA [Suspect]
     Dosage: ADDITIONAL INDICATION: RHUEMATOID ARTHRITIS
     Route: 042
     Dates: start: 201009, end: 20100901
  5. FOLIC ACID [Concomitant]
  6. OMEPRAZOLE [Concomitant]
  7. VALPROIC ACID [Concomitant]
     Indication: CONVULSION
  8. DIAZEPAM [Concomitant]
     Indication: CONVULSION
  9. IMIPRAMINE [Concomitant]
     Indication: ANXIETY
  10. CIPROFIBRATO [Concomitant]
  11. DOXYCYCLINE [Concomitant]
  12. PARACETAMOL [Concomitant]
  13. SOLU-MEDROL [Concomitant]
  14. PREDNISONE [Concomitant]

REACTIONS (9)
  - Arthritis bacterial [Recovering/Resolving]
  - Systemic lupus erythematosus [Recovering/Resolving]
  - Activities of daily living impaired [Recovering/Resolving]
  - Weight increased [Recovering/Resolving]
  - Herpes virus infection [Recovered/Resolved]
  - Immunodeficiency [Recovering/Resolving]
  - Incision site pain [Recovering/Resolving]
  - Decubitus ulcer [Recovering/Resolving]
  - Osteitis [Recovering/Resolving]
